FAERS Safety Report 5684040-0 (Version None)
Quarter: 2008Q1

REPORT INFORMATION
  Report Type: 
  Country: None (occurrence: None)
  Receive Date: 20080328
  Receipt Date: 20080320
  Transmission Date: 20080703
  Serious: No
  Sender: FDA-Public Use
  Company Number: US-JNJFOC-20080201806

PATIENT
  Sex: Female
  Weight: 49.9 kg

DRUGS (4)
  1. INVEGA [Suspect]
     Indication: DRUG THERAPY
     Route: 048
  2. CELEXA [Concomitant]
     Indication: BIPOLAR II DISORDER
     Route: 048
  3. PAXIL CR [Concomitant]
     Indication: ANXIETY
  4. ATIVAN [Concomitant]
     Indication: ANXIETY
     Dosage: 1 MG, 3 TIMES DAILY AS NECCESARY.

REACTIONS (3)
  - BLOOD PROLACTIN INCREASED [None]
  - BREAST PAIN [None]
  - BREAST TENDERNESS [None]
